FAERS Safety Report 9395016 (Version 1)
Quarter: 2013Q3

REPORT INFORMATION
  Report Type: Report from Study
  Country: BR (occurrence: BR)
  Receive Date: 20130711
  Receipt Date: 20130711
  Transmission Date: 20140515
  Serious: Yes (Other)
  Sender: FDA-Public Use
  Company Number: BR-US-EMD SERONO, INC.-7222762

PATIENT
  Sex: Female

DRUGS (4)
  1. REBIF [Suspect]
     Indication: RELAPSING-REMITTING MULTIPLE SCLEROSIS
     Dates: start: 20100930
  2. SOLU MEDROL [Suspect]
     Indication: PRODUCT USED FOR UNKNOWN INDICATION
     Dates: start: 2011
  3. GLIFAGE [Concomitant]
     Indication: DIABETES PROPHYLAXIS
     Dosage: 1 TABLET AFTER LUNCH
  4. THYROXINE [Concomitant]
     Indication: HYPOTHYROIDISM

REACTIONS (7)
  - Scleroderma [Unknown]
  - Blood cholesterol increased [Unknown]
  - Gastritis [Unknown]
  - Hypertension [Unknown]
  - Macule [Unknown]
  - Injection site infection [Recovering/Resolving]
  - Injection site pain [Recovering/Resolving]
